FAERS Safety Report 6657991-8 (Version None)
Quarter: 2010Q1

REPORT INFORMATION
  Report Type: 
  Country: None (occurrence: None)
  Receive Date: 20100330
  Receipt Date: 20100317
  Transmission Date: 20100710
  Serious: Yes (Other)
  Sender: FDA-Public Use
  Company Number: US-PFIZER INC-2010035337

PATIENT
  Age: 86 Year
  Sex: Female

DRUGS (6)
  1. AZITHROMYCIN [Suspect]
     Indication: BABESIOSIS
     Dosage: 500 MG, 1X/DAY
     Dates: start: 20050715, end: 20050715
  2. AZITHROMYCIN [Suspect]
     Dosage: 250 MG, 1X/DAY
     Dates: start: 20050716
  3. AZITHROMYCIN [Suspect]
     Dosage: 500 MG, 1X/DAY
     Dates: start: 20050903, end: 20050903
  4. AZITHROMYCIN [Suspect]
     Dosage: 250 MG, 1X/DAY
     Dates: start: 20050904
  5. ATOVAQUONE [Suspect]
     Indication: BABESIOSIS
     Dosage: 750 MG, 2X/DAY
     Dates: start: 20050715
  6. ATOVAQUONE [Suspect]
     Dosage: 750 MG, 2X/DAY
     Dates: start: 20050903

REACTIONS (1)
  - PATHOGEN RESISTANCE [None]
